FAERS Safety Report 6456889-8 (Version None)
Quarter: 2009Q4

REPORT INFORMATION
  Report Type: 
  Country: None (occurrence: None)
  Receive Date: 20091120
  Receipt Date: 20091106
  Transmission Date: 20100525
  Serious: Yes (Other)
  Sender: FDA-Public Use
  Company Number: DSU-2009-01824

PATIENT
  Age: 56 Year
  Sex: Male
  Weight: 88.4514 kg

DRUGS (8)
  1. BENICAR [Suspect]
     Indication: HYPERTENSION
     Dosage: 20 MG (20 MG, 1D (1/2 40 MG TABLET)), PER ORAL
     Route: 048
     Dates: start: 20090801
  2. BENICAR HCT [Suspect]
     Indication: HYPERTENSION
     Dosage: 40/12.5 MG QD, PER ORAL
     Route: 048
     Dates: start: 20070101, end: 20090801
  3. ALPRAZOLAM (ALPRAZOLAM) (0.25 MILLIGRAM) (ALPRAZOLAM) [Concomitant]
  4. CYMBALTA [Concomitant]
  5. METHYLPHENIDATE ER (METHYLPHENIDATE HYDROCHLORIDE) [Concomitant]
  6. FISH OIL         (FISH OIL) [Concomitant]
  7. ASPIRIN [Concomitant]
  8. GLUCOSAMINE CHONDROITON         (GLUCOSAMINE CHONDROITIN SULFATE) [Concomitant]

REACTIONS (5)
  - DRUG ADMINISTRATION ERROR [None]
  - HEADACHE [None]
  - HYPERTENSION [None]
  - HYPOTENSION [None]
  - WEIGHT DECREASED [None]
